FAERS Safety Report 9868020 (Version 3)
Quarter: 2016Q1

REPORT INFORMATION
  Report Type: Report from Study
  Country: PL (occurrence: PL)
  Receive Date: 20140204
  Receipt Date: 20160226
  Transmission Date: 20160526
  Serious: Yes (Other)
  Sender: FDA-Public Use
  Company Number: PL-SANOFI-AVENTIS-2013SA029668

PATIENT
  Age: 54 Year
  Sex: Female

DRUGS (4)
  1. CAPTOPRIL. [Concomitant]
     Active Substance: CAPTOPRIL
     Indication: HYPERTENSION
     Route: 048
     Dates: start: 20080407
  2. LOCREN [Concomitant]
     Dates: start: 20080407
  3. ETHINYLESTRADIOL/NORGESTREL [Concomitant]
     Active Substance: ETHINYL ESTRADIOL\NORGESTREL
     Indication: CONTRACEPTION
     Dosage: DOSE:1 UNIT(S)
     Route: 048
     Dates: start: 20051115, end: 201206
  4. TERIFLUNOMIDE [Suspect]
     Active Substance: TERIFLUNOMIDE
     Indication: MULTIPLE SCLEROSIS RELAPSE
     Route: 048
     Dates: start: 20071219, end: 20130314

REACTIONS (1)
  - Breast cancer [Not Recovered/Not Resolved]

NARRATIVE: CASE EVENT DATE: 20130312
